FAERS Safety Report 9010991 (Version 1)
Quarter: 2013Q1

REPORT INFORMATION
  Report Type: Spontaneous
  Country: US (occurrence: US)
  Receive Date: 20130109
  Receipt Date: 20130109
  Transmission Date: 20140127
  Serious: Yes (Death)
  Sender: FDA-Public Use
  Company Number: US-BAYER-2013-001976

PATIENT
  Age: 47 Year
  Sex: Female

DRUGS (5)
  1. PARACETAMOL + DIPHENHYDRAMINE [Suspect]
  2. UNSPECIFIED [Suspect]
  3. HYDROXYZINE [Suspect]
  4. DIAZEPAM [Suspect]
  5. CLONAZEPAM [Suspect]

REACTIONS (4)
  - Toxicity to various agents [Fatal]
  - Completed suicide [None]
  - Cardiac arrest [None]
  - Respiratory arrest [None]
